FAERS Safety Report 10642923 (Version 2)
Quarter: 2015Q1

REPORT INFORMATION
  Report Type: Spontaneous
  Country: CN (occurrence: CN)
  Receive Date: 20141210
  Receipt Date: 20150325
  Transmission Date: 20150720
  Serious: Yes (Hospitalization)
  Sender: FDA-Public Use
  Company Number: CN-ASTRAZENECA-2014SE93246

PATIENT
  Age: 42 Year
  Sex: Female

DRUGS (3)
  1. NEXIUM [Suspect]
     Active Substance: ESOMEPRAZOLE MAGNESIUM
     Indication: ABDOMINAL DISTENSION
     Route: 048
  2. BENZATHINE PENICILLIN [Concomitant]
     Dosage: OCCASIONALLY
  3. NEXIUM [Suspect]
     Active Substance: ESOMEPRAZOLE MAGNESIUM
     Indication: ABDOMINAL PAIN UPPER
     Route: 048

REACTIONS (7)
  - Nephritis [Recovered/Resolved]
  - Blood pressure decreased [Unknown]
  - Product use issue [Unknown]
  - Pruritus [Recovering/Resolving]
  - Rash generalised [Recovering/Resolving]
  - Drug hypersensitivity [Unknown]
  - Back pain [Recovering/Resolving]
